FAERS Safety Report 15869839 (Version 2)
Quarter: 2019Q4

REPORT INFORMATION
  Report Type: Spontaneous
  Country: IT (occurrence: IT)
  Receive Date: 20190125
  Receipt Date: 20191213
  Transmission Date: 20200122
  Serious: Yes (Other)
  Sender: FDA-Public Use
  Company Number: PHHY2019IT016223

PATIENT
  Age: 47 Year
  Sex: Male

DRUGS (7)
  1. FLUOROURACIL. [Suspect]
     Active Substance: FLUOROURACIL
     Dosage: 3400 MG, CYCLIC
     Route: 042
     Dates: start: 20181029
  2. OXALIPLATIN. [Suspect]
     Active Substance: OXALIPLATIN
     Indication: ADENOCARCINOMA OF COLON
     Dosage: 130 MG, CYCLIC
     Route: 042
     Dates: start: 20180530, end: 20181029
  3. DOXIFLURIDINE [Suspect]
     Active Substance: DOXIFLURIDINE
     Indication: ADENOCARCINOMA OF COLON
     Dosage: 500 MG, CYCLIC
     Route: 040
     Dates: start: 20180530, end: 20181029
  4. AVASTIN [Suspect]
     Active Substance: BEVACIZUMAB
     Indication: METASTASES TO LIVER
     Dosage: 330 MG, CYCLIC
     Route: 042
     Dates: start: 20180710, end: 20181029
  5. OXALIPLATIN. [Suspect]
     Active Substance: OXALIPLATIN
     Dosage: 130 MG, CYCLIC
     Route: 042
     Dates: start: 20181029
  6. FLUOROURACIL. [Suspect]
     Active Substance: FLUOROURACIL
     Indication: ADENOCARCINOMA OF COLON
     Dosage: 3400 MG, CYCLIC
     Route: 042
     Dates: start: 20180530, end: 20181029
  7. DOXIFLURIDINE [Suspect]
     Active Substance: DOXIFLURIDINE
     Dosage: 500 MG, CYCLIC
     Route: 040
     Dates: start: 20181029

REACTIONS (2)
  - Neurotoxicity [Recovering/Resolving]
  - Thrombocytopenia [Recovering/Resolving]

NARRATIVE: CASE EVENT DATE: 20181115
